FAERS Safety Report 17291808 (Version 1)
Quarter: 2020Q1

REPORT INFORMATION
  Report Type: Spontaneous
  Country: US (occurrence: US)
  Receive Date: 20200118
  Receipt Date: 20200118
  Transmission Date: 20200409
  Serious: Yes (Disabling)
  Sender: FDA-Public Use
  Company Number: None

PATIENT
  Age: 55 Year
  Sex: Female
  Weight: 60.75 kg

DRUGS (4)
  1. TREMFYA [Suspect]
     Active Substance: GUSELKUMAB
     Indication: PSORIASIS
     Dates: start: 20190213
  2. PPI [Concomitant]
     Active Substance: UNSPECIFIED INGREDIENT
  3. VITAMIN-D [Concomitant]
     Active Substance: VITAMIN D NOS
  4. ZOFRAN [Concomitant]
     Active Substance: ONDANSETRON HYDROCHLORIDE

REACTIONS (10)
  - Biliary dilatation [None]
  - Malaise [None]
  - Abdominal pain upper [None]
  - Injection site urticaria [None]
  - Ulcer [None]
  - Nausea [None]
  - Influenza like illness [None]
  - Duodenitis [None]
  - Oesophagitis [None]
  - Lipase increased [None]

NARRATIVE: CASE EVENT DATE: 20191213
